FAERS Safety Report 16163682 (Version 3)
Quarter: 2019Q2

REPORT INFORMATION
  Report Type: Spontaneous
  Country: US (occurrence: US)
  Receive Date: 20190405
  Receipt Date: 20190516
  Transmission Date: 20190711
  Serious: Yes (Hospitalization, Other)
  Sender: FDA-Public Use
  Company Number: US-BAYER-2019-067055

PATIENT
  Age: 45 Year
  Sex: Female

DRUGS (2)
  1. BETASERON [Suspect]
     Active Substance: INTERFERON BETA-1B
     Indication: MULTIPLE SCLEROSIS
     Dosage: 0.75 ML
     Dates: start: 1998
  2. BETASERON [Suspect]
     Active Substance: INTERFERON BETA-1B
     Indication: MULTIPLE SCLEROSIS
     Dosage: UNK
     Dates: start: 1994, end: 1996

REACTIONS (9)
  - Angina pectoris [None]
  - Stress cardiomyopathy [None]
  - Endometriosis [None]
  - Respiratory tract infection viral [Recovering/Resolving]
  - Malaise [None]
  - Multiple sclerosis relapse [None]
  - Fall [None]
  - White blood cell count decreased [None]
  - Sciatica [None]

NARRATIVE: CASE EVENT DATE: 1996
